FAERS Safety Report 7530888-7 (Version None)
Quarter: 2011Q2

REPORT INFORMATION
  Report Type: 
  Country: None (occurrence: None)
  Receive Date: 20110608
  Receipt Date: 20110526
  Transmission Date: 20111010
  Serious: Yes (Congenital Anomaly)
  Sender: FDA-Public Use
  Company Number: US-BIOGENIDEC-2011BI009706

PATIENT
  Age: 0 Year
  Sex: Female

DRUGS (6)
  1. FERRALET [Concomitant]
     Indication: DRUG EXPOSURE DURING PREGNANCY
     Route: 048
     Dates: start: 20100504
  2. AVONEX [Suspect]
     Indication: DRUG EXPOSURE DURING PREGNANCY
     Route: 030
     Dates: start: 20080915, end: 20100406
  3. TYLENOL PM [Concomitant]
     Indication: DRUG EXPOSURE DURING PREGNANCY
     Route: 048
  4. ZANTAC [Concomitant]
     Indication: GASTROOESOPHAGEAL REFLUX DISEASE
     Dates: start: 20101227
  5. PRENATAL VITAMINS [Concomitant]
     Indication: DRUG EXPOSURE DURING PREGNANCY
     Route: 048
     Dates: start: 20100407
  6. PREVACID [Concomitant]
     Indication: GASTROOESOPHAGEAL REFLUX DISEASE
     Dates: start: 20101227

REACTIONS (6)
  - MARCUS GUNN SYNDROME [None]
  - TORTICOLLIS [None]
  - ATRIAL SEPTAL DEFECT [None]
  - GASTROOESOPHAGEAL REFLUX DISEASE [None]
  - CONGENITAL INTESTINAL MALFORMATION [None]
  - BREAST MALFORMATION [None]
